FAERS Safety Report 9012045 (Version 1)
Quarter: 2012Q4

REPORT INFORMATION
  Report Type: Spontaneous
  Country: FR (occurrence: None)
  Receive Date: 20121228
  Receipt Date: 20121228
  Transmission Date: 20130627
  Serious: Yes (Hospitalization)
  Sender: FDA-Public Use
  Company Number: 2012CP000162

PATIENT
  Age: 65 Year
  Sex: Male

DRUGS (16)
  1. PERFALGAN (PARACETAMOL) [Suspect]
     Route: 042
     Dates: start: 20121123
  2. NEFOPAM [Suspect]
     Dosage: 80 mg, qd. IV
     Dates: start: 20121123
  3. HYDROXYZINE HYDROCHLORIDE [Suspect]
     Route: 042
     Dates: start: 20121124
  4. LOVENOX (ENOXAPARIN SODIUM) [Suspect]
     Route: 058
     Dates: start: 20121123
  5. FLUOROURACIL (FLUOROURACIL) [Suspect]
  6. LEUCOVORIN [Suspect]
  7. OXALIPLATIN (OXALIPLATIN) [Suspect]
  8. FUROSEMIDE [Concomitant]
  9. AVODART [Concomitant]
  10. PERMIXON [Concomitant]
  11. MECIR [Concomitant]
  12. CIPROFIBRATE [Concomitant]
  13. CORTANCYL [Concomitant]
  14. SEROPLEX [Concomitant]
  15. ACTISKENAN [Concomitant]
  16. APROVEL [Concomitant]

REACTIONS (2)
  - Dermatitis bullous [None]
  - Neutropenia [None]
